FAERS Safety Report 4647168-X (Version None)
Quarter: 2005Q2

REPORT INFORMATION
  Report Type: 
  Country: None (occurrence: None)
  Receive Date: 20050426
  Receipt Date: 20050426
  Transmission Date: 20051028
  Serious: Yes (Hospitalization)
  Sender: FDA-Public Use
  Company Number: None

PATIENT
  Age: 54 Year
  Sex: Female

DRUGS (1)
  1. PROCRIT [Suspect]
     Indication: ANAEMIA
     Dosage: 90,000 IU  SQ  WEEKLY
     Route: 058
     Dates: start: 20050125

REACTIONS (6)
  - BREAST CANCER RECURRENT [None]
  - CHEST PAIN [None]
  - CHEST WALL PAIN [None]
  - DEEP VEIN THROMBOSIS [None]
  - DYSPNOEA [None]
  - WOUND [None]
